FAERS Safety Report 5128994-X (Version None)
Quarter: 2006Q4

REPORT INFORMATION
  Report Type: 
  Country: None (occurrence: None)
  Receive Date: 20061016
  Receipt Date: 20061016
  Transmission Date: 20070319
  Serious: Yes (Other)
  Sender: FDA-Public Use
  Company Number: None

PATIENT
  Age: 49 Year
  Sex: Female
  Weight: 49.8957 kg

DRUGS (4)
  1. ZONEGRAN [Suspect]
     Indication: HEADACHE
     Dosage: 20 MG B.I.D. PO
     Route: 048
     Dates: start: 20051207, end: 20060721
  2. TAMOXIFEN CITRATE [Concomitant]
  3. CELEBREX [Concomitant]
  4. FLONASE [Concomitant]

REACTIONS (2)
  - COUGH [None]
  - THERAPY NON-RESPONDER [None]
